FAERS Safety Report 8345076-4 (Version None)
Quarter: 2012Q2

REPORT INFORMATION
  Report Type: 
  Country: None (occurrence: None)
  Receive Date: 20120508
  Receipt Date: 20120430
  Transmission Date: 20120825
  Serious: Yes (Other)
  Sender: FDA-Public Use
  Company Number: AU-BAYER-2012-041694

PATIENT
  Age: 29 Year
  Sex: Female
  Weight: 50 kg

DRUGS (1)
  1. MIRENA [Suspect]
     Indication: CONTRACEPTION
     Dosage: 20 MCG/24HR, CONT
     Route: 015
     Dates: start: 20091211, end: 20111004

REACTIONS (17)
  - DYSPNOEA [None]
  - SUICIDAL BEHAVIOUR [None]
  - DYSPEPSIA [None]
  - AGITATION [None]
  - FEELING ABNORMAL [None]
  - HYPOAESTHESIA [None]
  - CHEMICAL POISONING [None]
  - SCIATICA [None]
  - PALPITATIONS [None]
  - OCULAR DISCOMFORT [None]
  - PARAESTHESIA [None]
  - ANXIETY [None]
  - RASH MORBILLIFORM [None]
  - HORMONE LEVEL ABNORMAL [None]
  - DIZZINESS [None]
  - VISION BLURRED [None]
  - VAGINAL HAEMORRHAGE [None]
